FAERS Safety Report 16226749 (Version 1)
Quarter: 2019Q2

REPORT INFORMATION
  Report Type: Spontaneous
  Country: US (occurrence: US)
  Receive Date: 20190423
  Receipt Date: 20190423
  Transmission Date: 20190711
  Serious: Yes (Disabling)
  Sender: FDA-Public Use
  Company Number: US-SA-2019SA111225

PATIENT
  Age: 43 Year
  Sex: Female

DRUGS (14)
  1. DUPIXENT [Suspect]
     Active Substance: DUPILUMAB
     Dosage: UNK, QW
     Route: 058
  2. TACROLIMUS. [Concomitant]
     Active Substance: TACROLIMUS
  3. VITAMIN D3 [Concomitant]
     Active Substance: CHOLECALCIFEROL
  4. VALACYCLOVIR [Concomitant]
     Active Substance: VALACYCLOVIR HYDROCHLORIDE
  5. OFLOXACIN. [Concomitant]
     Active Substance: OFLOXACIN
  6. DIPHENHYDRAMINE. [Concomitant]
     Active Substance: DIPHENHYDRAMINE
  7. EUCRISA [Concomitant]
     Active Substance: CRISABOROLE
  8. RESTASIS [Concomitant]
     Active Substance: CYCLOSPORINE
  9. DUPIXENT [Suspect]
     Active Substance: DUPILUMAB
     Indication: DERMATITIS ATOPIC
     Dosage: 300 MG, QOW
     Route: 058
     Dates: start: 20170701
  10. VITAMIN B COMPLEX [Concomitant]
     Active Substance: CYANOCOBALAMIN\DEXPANTHENOL\NIACINAMIDE\PYRIDOXINE HYDROCHLORIDE\RIBOFLAVIN 5^-PHOSPHATE SODIUM\THIAMINE HYDROCHLORIDE\VITAMIN B COMPLEX
  11. PREDNISOLONE ACETATE. [Concomitant]
     Active Substance: PREDNISOLONE ACETATE
  12. FISH OIL [Concomitant]
     Active Substance: FISH OIL
  13. PROBIOTIC [BIFIDOBACTERIUM LACTIS] [Concomitant]
  14. TURMERIC [CURCUMA LONGA] [Concomitant]

REACTIONS (4)
  - Scleral discolouration [Not Recovered/Not Resolved]
  - Impaired driving ability [Unknown]
  - Photophobia [Unknown]
  - Conjunctivitis [Not Recovered/Not Resolved]

NARRATIVE: CASE EVENT DATE: 20190101
